FAERS Safety Report 21691805 (Version 2)
Quarter: 2022Q4

REPORT INFORMATION
  Report Type: Spontaneous
  Country: FR (occurrence: FR)
  Receive Date: 20221207
  Receipt Date: 20221214
  Transmission Date: 20230113
  Serious: No
  Sender: FDA-Public Use
  Company Number: FR-BAXTER-2022BAX025737

PATIENT
  Sex: Female
  Weight: 27 kg

DRUGS (1)
  1. OLIMEL E [Suspect]
     Active Substance: AMINO ACIDS\DEXTROSE\ELECTROLYTES NOS\SOYBEAN OIL
     Dosage: AT UNSPECIFIED DOSE AND FREQUENCY (BAG VOLUME 1000 ML)
     Route: 065

REACTIONS (1)
  - Bacterial infection [Unknown]
